FAERS Safety Report 6527679-2 (Version None)
Quarter: 2010Q1

REPORT INFORMATION
  Report Type: 
  Country: None (occurrence: None)
  Receive Date: 20100105
  Receipt Date: 20091225
  Transmission Date: 20100710
  Serious: Yes (Hospitalization)
  Sender: FDA-Public Use
  Company Number: JP-AMGEN-US383126

PATIENT
  Sex: Male
  Weight: 49 kg

DRUGS (8)
  1. ENBREL [Suspect]
     Indication: RHEUMATOID ARTHRITIS
     Route: 058
     Dates: start: 20080117, end: 20080418
  2. ENBREL [Suspect]
     Dosage: 25 MGX2/WEEK (SOLUTION FOR INJECTION)
     Route: 058
     Dates: start: 20080425, end: 20090113
  3. PREDONINE [Suspect]
     Indication: RHEUMATOID ARTHRITIS
     Route: 048
     Dates: start: 20071019, end: 20080514
  4. CELECOXIB [Concomitant]
     Indication: RHEUMATOID ARTHRITIS
     Route: 048
     Dates: start: 20071019, end: 20081002
  5. JUVELA [Concomitant]
     Indication: ARTERIOSCLEROSIS OBLITERANS
     Route: 048
     Dates: start: 20071212, end: 20080314
  6. MINOCYCLINE [Concomitant]
     Indication: CHRONIC SINUSITIS
     Route: 048
     Dates: start: 20071019, end: 20080514
  7. METHOTREXATE [Concomitant]
     Indication: RHEUMATOID ARTHRITIS
     Dosage: UNKNOWN
     Route: 048
     Dates: start: 20070101, end: 20080723
  8. MUCOSTA [Concomitant]
     Indication: GASTRITIS
     Route: 048
     Dates: start: 20071019, end: 20081002

REACTIONS (2)
  - CATARACT [None]
  - CONDITION AGGRAVATED [None]
